FAERS Safety Report 5958968-8 (Version None)
Quarter: 2008Q4

REPORT INFORMATION
  Report Type: 
  Country: None (occurrence: None)
  Receive Date: 20081117
  Receipt Date: 20081103
  Transmission Date: 20090506
  Serious: Yes (Other)
  Sender: FDA-Public Use
  Company Number: 2008-03821

PATIENT
  Age: 63 Year
  Sex: Male
  Weight: 88.3 kg

DRUGS (8)
  1. VELCADE [Suspect]
     Indication: MULTIPLE MYELOMA
     Dosage: 2.73 MG, INTRAVENOUS
     Route: 042
     Dates: start: 20080902, end: 20080926
  2. VELCADE [Suspect]
  3. VELCADE [Suspect]
  4. VELCADE [Suspect]
  5. DEXAMETHASONE 0.5MG TAB [Concomitant]
  6. LANSOPRAZOLE [Concomitant]
  7. ALLOPURINOL [Concomitant]
  8. ZOPICLONE (ZOPICLONE) [Concomitant]

REACTIONS (6)
  - ABDOMINAL PAIN [None]
  - DIARRHOEA [None]
  - HYPERHIDROSIS [None]
  - MUSCLE SPASMS [None]
  - NO THERAPEUTIC RESPONSE [None]
  - PALLOR [None]
